FAERS Safety Report 6762294-7 (Version None)
Quarter: 2010Q2

REPORT INFORMATION
  Report Type: 
  Country: None (occurrence: None)
  Receive Date: 20100609
  Receipt Date: 20100604
  Transmission Date: 20101027
  Serious: Yes (Other)
  Sender: FDA-Public Use
  Company Number: US-JNJFOC-20100602410

PATIENT
  Sex: Female
  Weight: 70.31 kg

DRUGS (7)
  1. DURAGESIC-100 [Suspect]
     Indication: PAIN
     Dosage: 1 EVERY 48 TO 72 HOURS
     Route: 062
  2. DURAGESIC-100 [Suspect]
     Dosage: 1 EVERY 48 TO 72 HOURS
     Route: 062
  3. DILAUDID [Concomitant]
     Indication: PAIN
     Route: 048
  4. SYNTHROID [Concomitant]
     Indication: THYROID DISORDER
     Route: 048
  5. DARVOCET [Concomitant]
     Indication: PAIN
     Route: 048
  6. NEURONTIN [Concomitant]
     Indication: NEUROMYOPATHY
     Route: 048
  7. ACIPHEX [Concomitant]
     Indication: GASTROOESOPHAGEAL REFLUX DISEASE
     Route: 048

REACTIONS (5)
  - BODY HEIGHT DECREASED [None]
  - PRODUCT ADHESION ISSUE [None]
  - PRODUCT QUALITY ISSUE [None]
  - PRURITUS [None]
  - WRONG TECHNIQUE IN DRUG USAGE PROCESS [None]
